FAERS Safety Report 6809897-9 (Version None)
Quarter: 2010Q2

REPORT INFORMATION
  Report Type: 
  Country: None (occurrence: None)
  Receive Date: 20100630
  Receipt Date: 20100623
  Transmission Date: 20101027
  Serious: Yes (Other)
  Sender: FDA-Public Use
  Company Number: JP-WYE-H15264510

PATIENT
  Sex: Male
  Weight: 71 kg

DRUGS (11)
  1. ZOSYN [Suspect]
     Indication: BIOPSY PROSTATE
     Route: 041
     Dates: start: 20100511, end: 20100511
  2. ZOSYN [Suspect]
     Indication: INFECTION PROPHYLAXIS
  3. BLOPRESS [Concomitant]
     Indication: HYPERTENSION
     Route: 048
  4. PROPOFOL [Suspect]
     Indication: DRUG USE FOR UNKNOWN INDICATION
     Dosage: 110 MG EVERY
     Route: 042
     Dates: start: 20100511, end: 20100511
  5. PROPOFOL [Suspect]
     Dosage: 30 MG EVERY
     Route: 042
     Dates: start: 20100511, end: 20100511
  6. CARBOCAIN [Suspect]
     Indication: DRUG USE FOR UNKNOWN INDICATION
     Route: 042
     Dates: start: 20100511, end: 20100511
  7. FENTANYL ^A.L.^ [Suspect]
     Indication: DRUG USE FOR UNKNOWN INDICATION
     Dosage: 75 MG EVERY
     Route: 042
     Dates: start: 20100511, end: 20100511
  8. FENTANYL ^A.L.^ [Suspect]
     Dosage: 25 MG EVERY
     Route: 042
     Dates: start: 20100511, end: 20100511
  9. FENTANYL ^A.L.^ [Suspect]
     Dosage: 50 MG EVERY
     Route: 042
     Dates: start: 20100511, end: 20100511
  10. ADALAT [Concomitant]
     Indication: HYPERTENSION
     Route: 048
  11. ATROPINE SULFATE [Suspect]
     Indication: DRUG USE FOR UNKNOWN INDICATION
     Route: 042
     Dates: start: 20100511, end: 20100511

REACTIONS (4)
  - ANAPHYLACTOID SHOCK [None]
  - BLOOD PRESSURE DECREASED [None]
  - DRUG ERUPTION [None]
  - OXYGEN SATURATION DECREASED [None]
